FAERS Safety Report 10421229 (Version 2)
Quarter: 2014Q3

REPORT INFORMATION
  Report Type: Spontaneous
  Country: US (occurrence: US)
  Receive Date: 20140830
  Receipt Date: 20140917
  Transmission Date: 20150326
  Serious: No
  Sender: FDA-Public Use
  Company Number: US-009507513-1408USA013563

PATIENT
  Age: 54 Year
  Sex: Female

DRUGS (1)
  1. NASONEX [Suspect]
     Active Substance: MOMETASONE FUROATE
     Indication: HYPERSENSITIVITY
     Dosage: 2 SPRAYS IN EACH NOSTRIL DAILY,ROUTE INTRANASAL
     Route: 045
     Dates: start: 2010

REACTIONS (2)
  - Pruritus [Recovering/Resolving]
  - Product odour abnormal [Unknown]

NARRATIVE: CASE EVENT DATE: 201408
